FAERS Safety Report 9191041 (Version 1)
Quarter: 2013Q1

REPORT INFORMATION
  Report Type: Spontaneous
  Country: US (occurrence: US)
  Receive Date: 20130326
  Receipt Date: 20130326
  Transmission Date: 20140127
  Serious: No
  Sender: FDA-Public Use
  Company Number: US-009507513-1303USA011163

PATIENT
  Sex: Female

DRUGS (1)
  1. DULERA [Suspect]
     Dosage: 2 PUFFS TWICE A DAY
     Route: 055

REACTIONS (3)
  - Drug dose omission [Unknown]
  - Medical device complication [Unknown]
  - No adverse event [Unknown]
